FAERS Safety Report 20532011 (Version 2)
Quarter: 2023Q1

REPORT INFORMATION
  Report Type: Report from Study
  Country: US (occurrence: US)
  Receive Date: 20220301
  Receipt Date: 20230207
  Transmission Date: 20230418
  Serious: No
  Sender: FDA-Public Use
  Company Number: US-AMRYT PHARMACEUTICALS DAC-AEGR005343

PATIENT
  Age: 18 Year
  Sex: Female
  Weight: 48.526 kg

DRUGS (5)
  1. MYALEPT [Suspect]
     Active Substance: METRELEPTIN
     Indication: Partial lipodystrophy
     Dosage: 1 MILLILITER, QD 100 UNITES (5MG)
     Route: 058
     Dates: start: 20211210
  2. MYALEPT [Suspect]
     Active Substance: METRELEPTIN
     Indication: Congenital generalised lipodystrophy
  3. BACTERIOSTATIC WATER [Concomitant]
     Active Substance: WATER
     Indication: Product used for unknown indication
  4. ALBUTEROL SULFATE [Concomitant]
     Active Substance: ALBUTEROL SULFATE
     Indication: Product used for unknown indication
  5. SYNTHROID [Concomitant]
     Active Substance: LEVOTHYROXINE SODIUM
     Indication: Product used for unknown indication
     Dosage: 50 MICROGRAM

REACTIONS (10)
  - Constipation [Not Recovered/Not Resolved]
  - Rash erythematous [Recovered/Resolved]
  - Injection site scar [Unknown]
  - Increased tendency to bruise [Unknown]
  - Injection site bruising [Unknown]
  - Injection site pain [Unknown]
  - Injection site inflammation [Unknown]
  - Blood glucose decreased [Unknown]
  - Headache [Not Recovered/Not Resolved]
  - Weight decreased [Unknown]

NARRATIVE: CASE EVENT DATE: 20211210
